FAERS Safety Report 4362017-5 (Version None)
Quarter: 2004Q2

REPORT INFORMATION
  Report Type: 
  Country: None (occurrence: None)
  Receive Date: 20040521
  Receipt Date: 20040217
  Transmission Date: 20050107
  Serious: Yes (Other)
  Sender: FDA-Public Use
  Company Number: US-GLAXOSMITHKLINE-A0498527A

PATIENT
  Age: 40 Year
  Sex: Male
  Weight: 88.6 kg

DRUGS (3)
  1. WELLBUTRIN [Suspect]
     Indication: DEPRESSION
     Dosage: 300MG PER DAY
     Route: 048
     Dates: start: 20031002, end: 20040115
  2. EFFEXOR XR [Concomitant]
     Dosage: 150MG PER DAY
  3. TRAZODONE HCL [Concomitant]
     Dosage: 25MG AS REQUIRED

REACTIONS (4)
  - AMNESIA [None]
  - AURA [None]
  - FATIGUE [None]
  - GRAND MAL CONVULSION [None]
